FAERS Safety Report 21069450 (Version 2)
Quarter: 2024Q3

REPORT INFORMATION
  Report Type: Spontaneous
  Country: US (occurrence: US)
  Receive Date: 20220712
  Receipt Date: 20240722
  Transmission Date: 20241016
  Serious: Yes (Other)
  Sender: ASTELLAS
  Company Number: US-ASTELLAS-2022US014933

PATIENT
  Age: 9 Decade
  Sex: Female

DRUGS (1)
  1. MYRBETRIQ [Suspect]
     Active Substance: MIRABEGRON
     Indication: Product used for unknown indication
     Route: 065
     Dates: start: 20220415, end: 20220416

REACTIONS (7)
  - Urinary retention [Unknown]
  - Feeling abnormal [Recovering/Resolving]
  - Asthenia [Unknown]
  - Fatigue [Unknown]
  - Sleep disorder [Unknown]
  - Abdominal discomfort [Unknown]
  - Dry mouth [Unknown]

NARRATIVE: CASE EVENT DATE: 20220416
